FAERS Safety Report 19820692 (Version 2)
Quarter: 2021Q4

REPORT INFORMATION
  Report Type: Spontaneous
  Country: US (occurrence: US)
  Receive Date: 20210913
  Receipt Date: 20211013
  Transmission Date: 20220303
  Serious: Yes (Hospitalization, Other)
  Sender: FDA-Public Use
  Company Number: US-AUROBINDO-AUR-APL-2021-038282

PATIENT
  Age: 44 Year
  Sex: Male
  Weight: 63.5 kg

DRUGS (1)
  1. CLOZAPINE [Suspect]
     Active Substance: CLOZAPINE
     Indication: Product used for unknown indication
     Dosage: UNK
     Route: 048
     Dates: end: 20210902

REACTIONS (9)
  - Illness [Unknown]
  - Intestinal ischaemia [Unknown]
  - Cardiac disorder [Unknown]
  - Abdominal distension [Unknown]
  - Hypotension [Unknown]
  - Sepsis [Unknown]
  - Renal failure [Unknown]
  - Near death experience [Unknown]
  - Small intestinal obstruction [Recovered/Resolved]

NARRATIVE: CASE EVENT DATE: 20210706
